FAERS Safety Report 8084626-2 (Version None)
Quarter: 2012Q1

REPORT INFORMATION
  Report Type: 
  Country: None (occurrence: None)
  Receive Date: 20120128
  Receipt Date: 20110330
  Transmission Date: 20120608
  Serious: No
  Sender: FDA-Public Use
  Company Number: US-ABBOTT-11P-163-0715378-00

PATIENT
  Age: 28 Year
  Sex: Female

DRUGS (5)
  1. FOLIC ACID [Concomitant]
     Indication: VITAMIN SUPPLEMENTATION
  2. SPRINTEC [Concomitant]
     Indication: CONTRACEPTION
     Dosage: LOW DOSE
  3. HUMIRA [Suspect]
     Indication: PSORIASIS
     Dates: start: 20110101
  4. METHOTREXATE [Concomitant]
     Indication: PSORIASIS
     Dosage: 20MG/0.8ML WEEKLY
  5. ALPRAZOLAM [Concomitant]
     Indication: ANXIETY

REACTIONS (1)
  - INJECTION SITE HAEMATOMA [None]
